FAERS Safety Report 7410403-9 (Version None)
Quarter: 2011Q2

REPORT INFORMATION
  Report Type: 
  Country: None (occurrence: None)
  Receive Date: 20110412
  Receipt Date: 20110408
  Transmission Date: 20111010
  Serious: Yes (Other)
  Sender: FDA-Public Use
  Company Number: GB-MERCK-1103GBR00138

PATIENT
  Age: 60 Year
  Sex: Male
  Weight: 77 kg

DRUGS (8)
  1. OMEPRAZOLE [Concomitant]
     Route: 065
     Dates: start: 20110316
  2. ZOCOR [Suspect]
     Route: 048
     Dates: start: 20110316
  3. ATORVASTATIN [Concomitant]
     Route: 065
     Dates: start: 20110316
  4. KETOPROFEN [Concomitant]
     Route: 065
     Dates: start: 20110302
  5. OMEPRAZOLE [Concomitant]
     Route: 065
     Dates: start: 20101209
  6. ACETAMINOPHEN [Concomitant]
     Route: 065
     Dates: start: 20101129
  7. ACETAMINOPHEN [Concomitant]
     Route: 065
     Dates: start: 20110215, end: 20110315
  8. OMEPRAZOLE [Concomitant]
     Route: 065
     Dates: start: 20110215, end: 20110315

REACTIONS (1)
  - MOUTH ULCERATION [None]
